FAERS Safety Report 18406344 (Version 1)
Quarter: 2020Q4

REPORT INFORMATION
  Report Type: Spontaneous
  Country: US (occurrence: US)
  Receive Date: 20201020
  Receipt Date: 20201020
  Transmission Date: 20210114
  Serious: No
  Sender: FDA-Public Use
  Company Number: US-LUPIN PHARMACEUTICALS INC.-2020-02449

PATIENT
  Age: 62 Year
  Sex: Female
  Weight: 63.49 kg

DRUGS (1)
  1. LISINOPRIL TABLETS USP, 10MG [Suspect]
     Active Substance: LISINOPRIL
     Indication: HYPERTENSION
     Dosage: 10 MILLIGRAM, QD
     Route: 048
     Dates: start: 201804, end: 201912

REACTIONS (10)
  - Abdominal discomfort [Recovered/Resolved]
  - Head discomfort [Recovered/Resolved]
  - Frustration tolerance decreased [Unknown]
  - Feeling abnormal [Recovered/Resolved]
  - Product quality issue [Unknown]
  - Fatigue [Recovered/Resolved]
  - Product substitution issue [Unknown]
  - Drug intolerance [Unknown]
  - Product coating issue [Recovered/Resolved]
  - Drug ineffective [Unknown]

NARRATIVE: CASE EVENT DATE: 201804
